FAERS Safety Report 16386038 (Version 1)
Quarter: 2019Q2

REPORT INFORMATION
  Report Type: Spontaneous
  Country: US (occurrence: US)
  Receive Date: 20190603
  Receipt Date: 20190603
  Transmission Date: 20190711
  Serious: Yes (Life-Threatening, Hospitalization, Other)
  Sender: FDA-Public Use
  Company Number: US-ACTELION-A-NJ2019-191107

PATIENT
  Age: 65 Year
  Sex: Female
  Weight: 53.06 kg

DRUGS (12)
  1. BYSTOLIC [Concomitant]
     Active Substance: NEBIVOLOL HYDROCHLORIDE
  2. SYNTHROID [Concomitant]
     Active Substance: LEVOTHYROXINE SODIUM
  3. UPTRAVI [Suspect]
     Active Substance: SELEXIPAG
     Indication: PULMONARY ARTERIAL HYPERTENSION
     Dosage: 1600 MCG, BID
     Route: 048
     Dates: start: 20190220
  4. ALDACTONE [Concomitant]
     Active Substance: SPIRONOLACTONE
  5. ADCIRCA [Concomitant]
     Active Substance: TADALAFIL
  6. ULTRAM [Concomitant]
     Active Substance: TRAMADOL HYDROCHLORIDE
  7. PROTONIX [Concomitant]
     Active Substance: PANTOPRAZOLE SODIUM
  8. ASA [Concomitant]
     Active Substance: ASPIRIN
  9. LYRICA [Concomitant]
     Active Substance: PREGABALIN
  10. UPTRAVI [Suspect]
     Active Substance: SELEXIPAG
     Dosage: 1400 MCG, BID
     Route: 048
     Dates: start: 201904
  11. FERROUS SULFATE. [Concomitant]
     Active Substance: FERROUS SULFATE
  12. AMBRISENTAN [Suspect]
     Active Substance: AMBRISENTAN
     Indication: PULMONARY ARTERIAL HYPERTENSION
     Dosage: 10 MG, QD
     Route: 065
     Dates: start: 20110920, end: 20190424

REACTIONS (16)
  - Pulmonary arterial hypertension [Unknown]
  - Paracentesis [Unknown]
  - Ascites [Unknown]
  - Dyspnoea [Recovered/Resolved]
  - Hepatic cirrhosis [Not Recovered/Not Resolved]
  - Blood creatinine increased [Not Recovered/Not Resolved]
  - Blood pressure decreased [Unknown]
  - Post procedural complication [Unknown]
  - Chest pain [Unknown]
  - Condition aggravated [Unknown]
  - Blood alkaline phosphatase increased [Recovered/Resolved]
  - Electrocardiogram abnormal [Unknown]
  - Liver transplant [Unknown]
  - Hepatic failure [Not Recovered/Not Resolved]
  - Acute kidney injury [Not Recovered/Not Resolved]
  - Liver function test increased [Recovered/Resolved]

NARRATIVE: CASE EVENT DATE: 2019
